FAERS Safety Report 7339502-7 (Version None)
Quarter: 2011Q1

REPORT INFORMATION
  Report Type: 
  Country: None (occurrence: None)
  Receive Date: 20110308
  Receipt Date: 20110119
  Transmission Date: 20110831
  Serious: No
  Sender: FDA-Public Use
  Company Number: US-AMGEN-USASP2011001593

PATIENT
  Age: 74 Year
  Sex: Female
  Weight: 114.29 kg

DRUGS (2)
  1. PROLIA [Suspect]
     Indication: OSTEOPOROSIS
     Dosage: 60 MG, Q6MO
     Route: 058
     Dates: start: 20110106, end: 20110106
  2. MOBIC [Concomitant]
     Dosage: 15 MG, UNK
     Dates: start: 20101202

REACTIONS (4)
  - SLEEP DISORDER [None]
  - ARTHRALGIA [None]
  - MYALGIA [None]
  - GAIT DISTURBANCE [None]
